FAERS Safety Report 8593873-2 (Version None)
Quarter: 2012Q3

REPORT INFORMATION
  Report Type: 
  Country: None (occurrence: None)
  Receive Date: 20120803
  Receipt Date: 20120803
  Transmission Date: 20120928
  Serious: No
  Sender: FDA-Public Use
  Company Number: None

PATIENT
  Age: 53 Year
  Sex: Female
  Weight: 86.1834 kg

DRUGS (1)
  1. CLOTRIMAZOLE [Suspect]
     Indication: ONYCHOMYCOSIS
     Dosage: SMALL AMOUNT OF LIQUID NOT STATED CUTANEOUS
     Route: 003
     Dates: start: 20120712, end: 20120720

REACTIONS (1)
  - PRODUCT LABEL ISSUE [None]
